FAERS Safety Report 6287439-7 (Version None)
Quarter: 2009Q3

REPORT INFORMATION
  Report Type: 
  Country: None (occurrence: None)
  Receive Date: 20090727
  Receipt Date: 20090714
  Transmission Date: 20100115
  Serious: Yes (Other)
  Sender: FDA-Public Use
  Company Number: 230025K09CHE

PATIENT
  Age: 38 Year
  Sex: Female
  Weight: 68 kg

DRUGS (2)
  1. REBIF [Suspect]
     Dosage: SUBCUTANEOUS
     Route: 058
     Dates: start: 20040101, end: 20090101
  2. ACETAMINOPHEN [Concomitant]

REACTIONS (4)
  - DENTAL CARIES [None]
  - DIARRHOEA [None]
  - FAECES DISCOLOURED [None]
  - PRODUCT FORMULATION ISSUE [None]
